FAERS Safety Report 5013989-7 (Version None)
Quarter: 2006Q2

REPORT INFORMATION
  Report Type: 
  Country: None (occurrence: None)
  Receive Date: 20060414
  Receipt Date: 20060127
  Transmission Date: 20061013
  Serious: No
  Sender: FDA-Public Use
  Company Number: 2006SP000528

PATIENT
  Age: 49 Year
  Sex: Male
  Weight: 83.9154 kg

DRUGS (7)
  1. LUNESTA [Suspect]
     Indication: INSOMNIA
     Dosage: 3 MG;1X;ORAL
     Route: 048
     Dates: start: 20060101, end: 20060101
  2. CELEBREX [Concomitant]
  3. METHYLPHENIDATE HCL [Concomitant]
  4. HYDROCHLORIDE [Concomitant]
  5. ATORVASTATIN CALCIUM [Concomitant]
  6. PIOGLITAZONE HCL [Concomitant]
  7. CLONAZEPAM [Concomitant]

REACTIONS (3)
  - DYSGEUSIA [None]
  - INSOMNIA [None]
  - NERVOUSNESS [None]
